FAERS Safety Report 9516067 (Version 2)
Quarter: 2013Q3

REPORT INFORMATION
  Report Type: Spontaneous
  Country: JP (occurrence: JP)
  Receive Date: 20130911
  Receipt Date: 20130911
  Transmission Date: 20140515
  Serious: Yes (Hospitalization, Other)
  Sender: FDA-Public Use
  Company Number: JP-PFIZER INC-2013251135

PATIENT
  Age: 89 Year
  Sex: Male

DRUGS (9)
  1. ZYVOX [Suspect]
     Indication: PNEUMONIA STAPHYLOCOCCAL
     Dosage: 1200 MG, 1X/DAY
     Route: 041
     Dates: start: 20130817, end: 20130819
  2. SULBACILLIN [Concomitant]
     Indication: PNEUMONIA
     Dosage: 6 G/DAY
     Route: 041
     Dates: start: 20130807, end: 20130817
  3. DOBUPUM [Concomitant]
     Dosage: 48 ML/DAY
     Route: 041
     Dates: start: 20130807
  4. POTASSIUM CHLORIDE [Concomitant]
     Dosage: 120 ML/DAY
     Route: 041
     Dates: start: 20130807
  5. FENTANYL [Concomitant]
     Dosage: 48 ML/DAY
     Route: 041
     Dates: start: 20130807
  6. NORADRENALINE [Concomitant]
     Dosage: 72 MG/DAY
     Route: 041
     Dates: start: 20130807
  7. PRECEDEX [Concomitant]
     Dosage: 96 UG/DAY
     Route: 041
     Dates: start: 20130807
  8. HANP [Concomitant]
     Dosage: 48 UG/DAY
     Route: 041
     Dates: start: 20130807, end: 20130816
  9. PROPOFOL [Concomitant]
     Dosage: 120 MG/DAY
     Route: 041
     Dates: start: 20130807, end: 20130816

REACTIONS (1)
  - Renal disorder [Recovered/Resolved]
